FAERS Safety Report 7196306-6 (Version None)
Quarter: 2010Q4

REPORT INFORMATION
  Report Type: 
  Country: None (occurrence: None)
  Receive Date: 20101223
  Receipt Date: 20101021
  Transmission Date: 20110411
  Serious: No
  Sender: FDA-Public Use
  Company Number: US-AMGEN-USASP2010002311

PATIENT

DRUGS (11)
  1. ENBREL [Suspect]
     Indication: PRODUCT USED FOR UNKNOWN INDICATION
     Dosage: 50 MG, QWK
  2. JANUVIA [Concomitant]
     Dosage: 100 MG, UNK
  3. LITHIUM [Concomitant]
     Dosage: 150 MG, UNK
  4. PREDNISONE [Concomitant]
     Dosage: 5 MG, UNK
  5. CADUET [Concomitant]
     Dosage: 10 MG, UNK
  6. OMEPRAZOLE [Concomitant]
     Dosage: 10 MG, UNK
  7. WARFARIN [Concomitant]
     Dosage: 2 MG, UNK
  8. CELEXA [Concomitant]
     Dosage: 10 MG, UNK
  9. FISH OIL [Concomitant]
     Dosage: UNK
  10. ZETIA [Concomitant]
     Dosage: 10 MG, UNK
  11. MULTI-VITAMINS [Concomitant]

REACTIONS (2)
  - INJECTION SITE ERYTHEMA [None]
  - INJECTION SITE PAIN [None]
